FAERS Safety Report 9689909 (Version 7)
Quarter: 2014Q2

REPORT INFORMATION
  Report Type: Spontaneous
  Country: US (occurrence: US)
  Receive Date: 20131115
  Receipt Date: 20140402
  Transmission Date: 20141212
  Serious: No
  Sender: FDA-Public Use
  Company Number: US-PFIZER INC-2013324240

PATIENT
  Age: 60 Year
  Sex: Female
  Weight: 58 kg

DRUGS (9)
  1. SUTENT [Suspect]
     Indication: METASTATIC RENAL CELL CARCINOMA
     Dosage: 50 MG, CYCLIC (DAILY, WITH BREAKS) [(4)12.5MG CAPS DAILY]
     Dates: start: 20131028
  2. SUTENT [Suspect]
     Dosage: 37.5 MG, DAILY (28 DAYS ON, 14 DAYS OFF)
  3. SUTENT [Suspect]
     Dosage: 25 MG DAILY, CYCLIC
     Dates: start: 20131221
  4. SUTENT [Suspect]
     Dosage: 37.5 MG, CYCLIC
     Dates: start: 20140120
  5. SUTENT [Suspect]
     Dosage: 25 MG, CYCLIC
  6. VICODIN [Concomitant]
     Dosage: UNK
  7. FLEXERIL [Concomitant]
     Dosage: UNK
  8. STOOL SOFTENER [Concomitant]
     Dosage: UNK
  9. AMBIEN [Concomitant]
     Dosage: UNK

REACTIONS (18)
  - Dysgeusia [Not Recovered/Not Resolved]
  - Stomatitis [Not Recovered/Not Resolved]
  - Tongue discolouration [Not Recovered/Not Resolved]
  - Glossodynia [Not Recovered/Not Resolved]
  - Gingival pain [Not Recovered/Not Resolved]
  - Dry mouth [Not Recovered/Not Resolved]
  - Constipation [Unknown]
  - Heart rate increased [Unknown]
  - Oral pain [Unknown]
  - Painful defaecation [Unknown]
  - Faeces hard [Unknown]
  - Rectal fissure [Unknown]
  - White blood cell count decreased [Unknown]
  - Pain in extremity [Recovered/Resolved]
  - Glossodynia [Not Recovered/Not Resolved]
  - Muscle spasms [Unknown]
  - Anal fissure [Unknown]
  - Herpes zoster [Recovered/Resolved]
